FAERS Safety Report 13497139 (Version 2)
Quarter: 2017Q2

REPORT INFORMATION
  Report Type: Spontaneous
  Country: TR (occurrence: TR)
  Receive Date: 20170428
  Receipt Date: 20170505
  Transmission Date: 20170830
  Serious: Yes (Other)
  Sender: FDA-Public Use
  Company Number: TR-PFIZER INC-3233309

PATIENT
  Age: 64 Year
  Sex: Female

DRUGS (17)
  1. CARBOPLATIN. [Suspect]
     Active Substance: CARBOPLATIN
     Indication: MANTLE CELL LYMPHOMA
     Dosage: UNK
  2. CYTARABINE. [Suspect]
     Active Substance: CYTARABINE
     Indication: MANTLE CELL LYMPHOMA
     Dosage: UNK
  3. FILGRASTIM [Suspect]
     Active Substance: FILGRASTIM
     Indication: STEM CELL TRANSPLANT
     Dosage: 10 UG/KG, DAILY
  4. ADRIAMYCIN [Suspect]
     Active Substance: DOXORUBICIN HYDROCHLORIDE
     Indication: MANTLE CELL LYMPHOMA
     Dosage: UNK
  5. TRIMETHOPRIM SULFAMETHOXAZOLE [Suspect]
     Active Substance: SULFAMETHOXAZOLE\TRIMETHOPRIM
     Indication: ANTIBIOTIC PROPHYLAXIS
     Dosage: UNK
  6. ETOPOSIDE. [Suspect]
     Active Substance: ETOPOSIDE
     Indication: MANTLE CELL LYMPHOMA REFRACTORY
     Dosage: UNK
  7. LEVOFLOXACIN. [Suspect]
     Active Substance: LEVOFLOXACIN
     Indication: ANTIBIOTIC PROPHYLAXIS
     Dosage: UNK
  8. RITUXIMAB [Suspect]
     Active Substance: RITUXIMAB
     Indication: MANTLE CELL LYMPHOMA REFRACTORY
  9. DEXAMETHASONE. [Concomitant]
     Active Substance: DEXAMETHASONE
     Indication: MANTLE CELL LYMPHOMA
     Dosage: UNK
  10. VINCRISTINE SULFATE. [Suspect]
     Active Substance: VINCRISTINE SULFATE
     Indication: MANTLE CELL LYMPHOMA
     Dosage: UNK
  11. RITUXIMAB [Suspect]
     Active Substance: RITUXIMAB
     Indication: MANTLE CELL LYMPHOMA
     Dosage: UNK
  12. PREDNISOLONE. [Concomitant]
     Active Substance: PREDNISOLONE
     Indication: MANTLE CELL LYMPHOMA
     Dosage: UNK
  13. DOXORUBICIN HCL [Suspect]
     Active Substance: DOXORUBICIN HYDROCHLORIDE
     Indication: MANTLE CELL LYMPHOMA
     Dosage: UNK
  14. FLUCONAZOLE. [Suspect]
     Active Substance: FLUCONAZOLE
     Indication: ANTIBIOTIC PROPHYLAXIS
     Dosage: UNK
  15. CYCLOPHOSPHAMIDE. [Suspect]
     Active Substance: CYCLOPHOSPHAMIDE
     Indication: MANTLE CELL LYMPHOMA
     Dosage: UNK
  16. IFOSFAMIDE. [Suspect]
     Active Substance: IFOSFAMIDE
     Indication: MANTLE CELL LYMPHOMA
     Dosage: UNK
  17. METHOTREXATE SODIUM. [Suspect]
     Active Substance: METHOTREXATE SODIUM
     Indication: MANTLE CELL LYMPHOMA
     Dosage: UNK

REACTIONS (1)
  - Acute febrile neutrophilic dermatosis [Recovered/Resolved]
